FAERS Safety Report 5847638-2 (Version None)
Quarter: 2008Q3

REPORT INFORMATION
  Report Type: 
  Country: None (occurrence: None)
  Receive Date: 20080815
  Receipt Date: 20080815
  Transmission Date: 20090109
  Serious: Yes (Congenital Anomaly)
  Sender: FDA-Public Use
  Company Number: None

PATIENT
  Sex: Female
  Weight: 99.7913 kg

DRUGS (1)
  1. MIRENA [Suspect]
     Indication: CONTRACEPTION
     Dates: start: 20080508

REACTIONS (6)
  - DIZZINESS [None]
  - HAEMORRHAGE [None]
  - SWELLING [None]
  - THROMBOSIS [None]
  - VISION BLURRED [None]
  - WEIGHT INCREASED [None]
